FAERS Safety Report 8800876 (Version 1)
Quarter: 2012Q4

REPORT INFORMATION
  Report Type: 
  Country: JP (occurrence: JP)
  Receive Date: 20120920
  Receipt Date: 20120920
  Transmission Date: 20130627
  Serious: Yes (Other)
  Sender: FDA-Public Use
  Company Number: JP-ROCHE-1129201

PATIENT

DRUGS (2)
  1. TAMIFLU [Suspect]
     Indication: INFLUENZA
     Dosage: for 5 days (days 1-5)
     Route: 048
  2. BLINDED LANINAMIVIR OCTANOATE [Suspect]
     Indication: INFLUENZA
     Dosage: inhalation powder once on day 1
     Route: 065

REACTIONS (1)
  - Hallucination, visual [Unknown]
